FAERS Safety Report 7485415-X (Version None)
Quarter: 2011Q2

REPORT INFORMATION
  Report Type: 
  Country: None (occurrence: None)
  Receive Date: 20110517
  Receipt Date: 20110504
  Transmission Date: 20111010
  Serious: Yes (Other)
  Sender: FDA-Public Use
  Company Number: US-AMGEN-USASP2011023191

PATIENT
  Age: 67 Year
  Sex: Female

DRUGS (1)
  1. ENBREL [Suspect]
     Indication: RHEUMATOID ARTHRITIS
     Dosage: 50 MG, QWK
     Dates: start: 20030501

REACTIONS (6)
  - LIGAMENT RUPTURE [None]
  - NASOPHARYNGITIS [None]
  - FOOT OPERATION [None]
  - ARTHROPATHY [None]
  - PAIN [None]
  - GAIT DISTURBANCE [None]
